FAERS Safety Report 23306323 (Version 3)
Quarter: 2024Q3

REPORT INFORMATION
  Report Type: Spontaneous
  Country: JP (occurrence: JP)
  Receive Date: 20231218
  Receipt Date: 20240702
  Transmission Date: 20241016
  Serious: Yes (Other)
  Sender: ROCHE
  Company Number: JP-CHUGAI-2023043971

PATIENT
  Age: 8 Decade
  Sex: Male

DRUGS (1)
  1. VABYSMO [Suspect]
     Active Substance: FARICIMAB\FARICIMAB-SVOA
     Indication: Neovascular age-related macular degeneration
     Dosage: 120 MILLIGRAM, ONCE/4WEEKS
     Route: 065
     Dates: start: 2023, end: 2023

REACTIONS (2)
  - Neoplasm malignant [Unknown]
  - Retinal haemorrhage [Not Recovered/Not Resolved]

NARRATIVE: CASE EVENT DATE: 20230101
